FAERS Safety Report 5135024-2 (Version None)
Quarter: 2006Q4

REPORT INFORMATION
  Report Type: 
  Country: None (occurrence: None)
  Receive Date: 20061025
  Receipt Date: 20060911
  Transmission Date: 20070319
  Serious: Yes (Other)
  Sender: FDA-Public Use
  Company Number: BE-MERCK-0609BEL00013

PATIENT
  Age: 64 Year
  Sex: Female
  Weight: 70 kg

DRUGS (6)
  1. ZETIA [Suspect]
     Indication: HYPERCHOLESTEROLAEMIA
     Route: 048
     Dates: start: 20060506, end: 20060908
  2. ZETIA [Suspect]
     Route: 048
     Dates: start: 20061002, end: 20061016
  3. WARFARIN SODIUM [Concomitant]
     Indication: PROPHYLAXIS
     Route: 048
     Dates: start: 20010101
  4. DIGOXIN [Concomitant]
     Indication: VENTRICULAR FIBRILLATION
     Route: 048
     Dates: start: 20040101
  5. SOTALOL HYDROCHLORIDE [Concomitant]
     Indication: ARRHYTHMIA
     Route: 048
     Dates: start: 20010101
  6. ZOPICLONE [Concomitant]
     Indication: INSOMNIA
     Route: 048
     Dates: start: 20040101

REACTIONS (2)
  - INCORRECT DOSE ADMINISTERED [None]
  - PROTHROMBIN TIME SHORTENED [None]
